FAERS Safety Report 7512290-7 (Version None)
Quarter: 2011Q2

REPORT INFORMATION
  Report Type: 
  Country: None (occurrence: None)
  Receive Date: 20110531
  Receipt Date: 20110524
  Transmission Date: 20111010
  Serious: Yes (Hospitalization)
  Sender: FDA-Public Use
  Company Number: US-GILEAD-2010-0034205

PATIENT
  Age: 52 Year
  Sex: Female

DRUGS (7)
  1. QVAR 40 [Concomitant]
  2. ZOLOFT [Concomitant]
  3. ATROVENT [Concomitant]
  4. ALBUTEROL [Concomitant]
  5. ATENOLOL [Concomitant]
  6. KLONOPIN [Concomitant]
  7. LETAIRIS [Suspect]
     Indication: PULMONARY ARTERIAL HYPERTENSION
     Route: 048
     Dates: start: 20091116

REACTIONS (2)
  - PULMONARY HYPERTENSION [None]
  - CHRONIC OBSTRUCTIVE PULMONARY DISEASE [None]
